FAERS Safety Report 6772832-6 (Version None)
Quarter: 2010Q2

REPORT INFORMATION
  Report Type: 
  Country: None (occurrence: None)
  Receive Date: 20100520
  Receipt Date: 20090618
  Transmission Date: 20101027
  Serious: Yes (Other)
  Sender: FDA-Public Use
  Company Number: 2008058376

PATIENT
  Age: 58 Year
  Sex: Female
  Weight: 63 kg

DRUGS (5)
  1. PROVERA [Suspect]
     Indication: HORMONE REPLACEMENT THERAPY
     Dosage: 5 MG, ORAL
     Route: 048
     Dates: end: 19990930
  2. PREMARIN [Suspect]
     Indication: HORMONE REPLACEMENT THERAPY
     Dates: end: 19990930
  3. PROGESTIN INJ [Suspect]
     Indication: HORMONE REPLACEMENT THERAPY
     Dates: start: 19990930
  4. ESTROGENS() [Suspect]
     Indication: HORMONE REPLACEMENT THERAPY
     Dosage: 5 MG,
     Dates: start: 19990930
  5. PROMETRIUM [Suspect]
     Dosage: 200 MG
     Dates: start: 20020201, end: 20031101

REACTIONS (1)
  - BREAST CANCER FEMALE [None]
